FAERS Safety Report 6762342-4 (Version None)
Quarter: 2010Q2

REPORT INFORMATION
  Report Type: 
  Country: None (occurrence: None)
  Receive Date: 20100609
  Receipt Date: 20100528
  Transmission Date: 20101027
  Serious: Yes (Hospitalization)
  Sender: FDA-Public Use
  Company Number: KR-JNJFOC-20100510586

PATIENT
  Sex: Male
  Weight: 75.5 kg

DRUGS (2)
  1. PALIPERIDONE PALMITATE [Suspect]
     Indication: SCHIZOPHRENIA
     Route: 030
  2. PALIPERIDONE PALMITATE [Suspect]
     Route: 030

REACTIONS (1)
  - DYSPNOEA [None]
